FAERS Safety Report 16880118 (Version 1)
Quarter: 2019Q4

REPORT INFORMATION
  Report Type: Report from Study
  Country: GB (occurrence: GB)
  Receive Date: 20191003
  Receipt Date: 20191003
  Transmission Date: 20200122
  Serious: Yes (Hospitalization)
  Sender: FDA-Public Use
  Company Number: GB-ROCHE-2416472

PATIENT
  Sex: Male

DRUGS (1)
  1. ROACTEMRA [Suspect]
     Active Substance: TOCILIZUMAB
     Indication: RHEUMATOID ARTHRITIS
     Route: 065
     Dates: start: 20120613

REACTIONS (3)
  - Rib fracture [Unknown]
  - Subcutaneous emphysema [Unknown]
  - Pneumothorax [Unknown]

NARRATIVE: CASE EVENT DATE: 20190804
